FAERS Safety Report 10004073 (Version 1)
Quarter: 2014Q1

REPORT INFORMATION
  Report Type: Spontaneous
  Country: IT (occurrence: IT)
  Receive Date: 20140312
  Receipt Date: 20140312
  Transmission Date: 20141002
  Serious: Yes (Hospitalization)
  Sender: FDA-Public Use
  Company Number: PHHY2014IT029250

PATIENT
  Age: 11 Year
  Sex: Male

DRUGS (2)
  1. TEGRETOL [Suspect]
     Indication: PARTIAL SEIZURES
     Dosage: 500 MG, DAILY
     Route: 048
     Dates: start: 20100226, end: 20100309
  2. GARDENALE [Concomitant]
     Indication: PARTIAL SEIZURES
     Dosage: 70 MG, UNK
     Route: 048
     Dates: start: 20091112, end: 20100309

REACTIONS (2)
  - Vertigo [Recovered/Resolved]
  - Erythema [Recovered/Resolved]
